FAERS Safety Report 5475695-4 (Version None)
Quarter: 2007Q4

REPORT INFORMATION
  Report Type: 
  Country: None (occurrence: None)
  Receive Date: 20071001
  Receipt Date: 20071001
  Transmission Date: 20080405
  Serious: Yes (Life-Threatening)
  Sender: FDA-Public Use
  Company Number: None

PATIENT
  Age: 17 Year
  Sex: Female
  Weight: 55.3388 kg

DRUGS (2)
  1. RITALIN [Suspect]
     Indication: ATTENTION DEFICIT/HYPERACTIVITY DISORDER
     Dosage: 20MG TABLET  3 PER DAY  PO
     Route: 048
     Dates: start: 19970801, end: 20070115
  2. METHYLPHENIDATE  20MG  NOVARTIS [Suspect]
     Dosage: 20 MG TABLET  3 PER DAY  PO
     Route: 048

REACTIONS (2)
  - APLASTIC ANAEMIA [None]
  - ILL-DEFINED DISORDER [None]
